FAERS Safety Report 5587417-7 (Version None)
Quarter: 2007Q4

REPORT INFORMATION
  Report Type: 
  Country: None (occurrence: None)
  Receive Date: 20071207
  Receipt Date: 20070919
  Transmission Date: 20080405
  Serious: Yes (Other)
  Sender: FDA-Public Use
  Company Number: 2007079155

PATIENT
  Age: 29 Year
  Sex: Male
  Weight: 90.9 kg

DRUGS (1)
  1. VIAGRA [Suspect]
     Indication: ERECTILE DYSFUNCTION
     Dates: start: 20070919

REACTIONS (2)
  - ERECTION INCREASED [None]
  - PAINFUL ERECTION [None]
